FAERS Safety Report 6418216-1 (Version None)
Quarter: 2009Q4

REPORT INFORMATION
  Report Type: 
  Country: None (occurrence: None)
  Receive Date: 20091026
  Receipt Date: 20091013
  Transmission Date: 20100525
  Serious: Yes (Other)
  Sender: FDA-Public Use
  Company Number: ADR38532009

PATIENT
  Age: 42 Year
  Sex: Male

DRUGS (10)
  1. SIMVASTATIN [Suspect]
     Indication: CEREBROVASCULAR ACCIDENT
     Dosage: 40 MG
  2. SIMVASTATIN [Suspect]
     Indication: CORONARY ARTERY DISEASE
     Dosage: 40 MG
  3. EZETIMIBE [Concomitant]
  4. ABACAVIR [Concomitant]
  5. ASPIRIN [Concomitant]
  6. BISOPROLOL [Concomitant]
  7. INDINAVIR [Concomitant]
  8. LAMIVUDINE [Concomitant]
  9. PERINDOPRIL [Concomitant]
  10. RITONAVIR [Concomitant]

REACTIONS (1)
  - RHABDOMYOLYSIS [None]
